FAERS Safety Report 14092981 (Version 5)
Quarter: 2018Q1

REPORT INFORMATION
  Report Type: Spontaneous
  Country: US (occurrence: US)
  Receive Date: 20171016
  Receipt Date: 20180206
  Transmission Date: 20180508
  Serious: Yes (Hospitalization, Other)
  Sender: FDA-Public Use
  Company Number: US-009507513-1710USA007060

PATIENT
  Sex: Female
  Weight: 95.24 kg

DRUGS (1)
  1. NUVARING [Suspect]
     Active Substance: ETHINYL ESTRADIOL\ETONOGESTREL
     Indication: CONTRACEPTION
     Dosage: UNK, UNKNOWN
     Route: 067
     Dates: start: 201508, end: 201511

REACTIONS (26)
  - Anaemia [Unknown]
  - Thrombocytopenia [Recovered/Resolved]
  - Syncope [Unknown]
  - Pulmonary embolism [Recovering/Resolving]
  - Deep vein thrombosis [Unknown]
  - Leukocytosis [Recovering/Resolving]
  - Menorrhagia [Unknown]
  - Pain in extremity [Unknown]
  - Hypertension [Unknown]
  - Haematoma [Unknown]
  - Electrocardiogram ST-T segment abnormal [Unknown]
  - Dysfunctional uterine bleeding [Unknown]
  - Vomiting [Unknown]
  - Cardio-respiratory arrest [Recovered/Resolved]
  - Femoral artery embolism [Recovering/Resolving]
  - Muscle spasms [Unknown]
  - Cardiac arrest [Recovered/Resolved]
  - Hypotension [Unknown]
  - Drug ineffective [Unknown]
  - Vascular pseudoaneurysm [Unknown]
  - Deep vein thrombosis [Unknown]
  - Nausea [Unknown]
  - Acute kidney injury [Recovering/Resolving]
  - Atelectasis [Unknown]
  - Headache [Unknown]
  - Pain in extremity [Unknown]

NARRATIVE: CASE EVENT DATE: 2015
